FAERS Safety Report 4742383-9 (Version None)
Quarter: 2005Q3

REPORT INFORMATION
  Report Type: 
  Country: None (occurrence: None)
  Receive Date: 20050808
  Receipt Date: 20050726
  Transmission Date: 20060218
  Serious: Yes (Other)
  Sender: FDA-Public Use
  Company Number: B0388735A

PATIENT
  Age: 56 Year

DRUGS (1)
  1. DARAPRIM [Suspect]
     Indication: TOXOPLASMOSIS

REACTIONS (1)
  - SARCOMA [None]
